FAERS Safety Report 8097370-2 (Version None)
Quarter: 2012Q1

REPORT INFORMATION
  Report Type: 
  Country: None (occurrence: None)
  Receive Date: 20120128
  Receipt Date: 20110712
  Transmission Date: 20120608
  Serious: No
  Sender: FDA-Public Use
  Company Number: US-ABBOTT-11P-163-0839787-00

PATIENT
  Sex: Female
  Weight: 90.8 kg

DRUGS (10)
  1. ENTOCORT EC [Suspect]
     Indication: CROHN'S DISEASE
     Route: 048
  2. LUNESTA [Concomitant]
     Indication: SLEEP DISORDER
     Dosage: AT HOUR OF SLEEP: 1/2 TABLET,1 IN 1 DAYS
     Route: 048
  3. HUMIRA [Suspect]
     Dosage: 1ST LOADING DOSE
     Route: 058
  4. PREVACID [Concomitant]
     Indication: GASTROOESOPHAGEAL REFLUX DISEASE
  5. HUMIRA [Suspect]
     Dosage: 2ND LOADING DOSE, ONCE
     Route: 058
  6. CELEXA [Concomitant]
     Indication: PRODUCT USED FOR UNKNOWN INDICATION
     Dates: start: 20010101
  7. HUMIRA [Suspect]
     Indication: CROHN'S DISEASE
     Dosage: TRIAL W/METHOTREXATE: 1 IN 2 WEEKS
     Route: 058
     Dates: start: 20060101, end: 20060101
  8. ENTOCORT EC [Suspect]
     Indication: DIARRHOEA
     Route: 048
  9. HUMIRA [Suspect]
     Route: 058
  10. MULTI-VITAMIN [Suspect]
     Indication: VITAMIN SUPPLEMENTATION
     Route: 048
     Dates: start: 20110601

REACTIONS (10)
  - URTICARIA [None]
  - SKIN DISORDER [None]
  - PRURITUS [None]
  - CONSTIPATION [None]
  - ARTHROPOD BITE [None]
  - DIARRHOEA [None]
  - DRY SKIN [None]
  - HAEMORRHAGE [None]
  - DRUG INEFFECTIVE [None]
  - SKIN EXFOLIATION [None]
